FAERS Safety Report 6814990-0 (Version None)
Quarter: 2010Q3

REPORT INFORMATION
  Report Type: 
  Country: None (occurrence: None)
  Receive Date: 20100702
  Receipt Date: 20100622
  Transmission Date: 20110219
  Serious: Yes (Hospitalization)
  Sender: FDA-Public Use
  Company Number: AT-WATSON-2010-08740

PATIENT
  Age: 43 Year
  Sex: Male

DRUGS (2)
  1. LAMOTRIGINE [Suspect]
     Indication: DEPRESSION
     Dosage: 50 MG, UNK
  2. CLOZAPINE [Suspect]
     Indication: BIPOLAR DISORDER
     Dosage: 350 MG, DAILY

REACTIONS (6)
  - DERMATITIS ALLERGIC [None]
  - DISORIENTATION [None]
  - DIZZINESS [None]
  - DRUG INTERACTION [None]
  - DRUG LEVEL INCREASED [None]
  - PYREXIA [None]
